FAERS Safety Report 8067537-8 (Version None)
Quarter: 2012Q1

REPORT INFORMATION
  Report Type: 
  Country: None (occurrence: None)
  Receive Date: 20120124
  Receipt Date: 20120118
  Transmission Date: 20120608
  Serious: No
  Sender: FDA-Public Use
  Company Number: US-B.I. PHARMACEUTICALS,INC./RIDGEFIELD-2012-BP-01069BP

PATIENT
  Age: 65 Year
  Sex: Male

DRUGS (6)
  1. SPIRIVA [Suspect]
     Indication: CHRONIC OBSTRUCTIVE PULMONARY DISEASE
     Dosage: 18 MCG
     Route: 055
  2. ROBAXIN [Concomitant]
     Indication: MUSCLE SPASMS
  3. SPIRIVA [Suspect]
     Route: 048
     Dates: start: 20120118, end: 20120118
  4. MUCINEX [Concomitant]
     Indication: INCREASED UPPER AIRWAY SECRETION
  5. ZOCOR [Concomitant]
     Indication: BLOOD CHOLESTEROL INCREASED
  6. ASPIRIN [Concomitant]
     Indication: ROUTINE HEALTH MAINTENANCE

REACTIONS (1)
  - INCORRECT ROUTE OF DRUG ADMINISTRATION [None]
